FAERS Safety Report 13815341 (Version 2)
Quarter: 2017Q3

REPORT INFORMATION
  Report Type: Spontaneous
  Country: GR (occurrence: GR)
  Receive Date: 20170731
  Receipt Date: 20170814
  Transmission Date: 20171127
  Serious: Yes (Hospitalization)
  Sender: FDA-Public Use
  Company Number: GR-PFIZER INC-2017325306

PATIENT
  Age: 41 Year
  Sex: Male
  Weight: 180 kg

DRUGS (4)
  1. ZOXIL /01319401/ [Suspect]
     Active Substance: OLANZAPINE
     Indication: BIPOLAR DISORDER
     Dosage: 5 MG, TWICE DAILY
     Route: 048
  2. CALCIORAL D3 [Concomitant]
     Indication: MINERAL DEFICIENCY
     Dosage: 500 MG, ONCE DAILY
     Route: 048
  3. DEZEPIL [Concomitant]
     Indication: BIPOLAR DISORDER
     Dosage: 100 MG, THREE TIMES DAILY
     Route: 048
  4. ZYVOXID [Suspect]
     Active Substance: LINEZOLID
     Indication: CELLULITIS
     Dosage: 600 MG, TWICE DAILY
     Route: 042
     Dates: start: 20170610, end: 20170611

REACTIONS (1)
  - Photosensitivity reaction [Recovered/Resolved]

NARRATIVE: CASE EVENT DATE: 20170610
